FAERS Safety Report 8887833 (Version 3)
Quarter: 2013Q1

REPORT INFORMATION
  Report Type: Spontaneous
  Country: US (occurrence: US)
  Receive Date: 20121106
  Receipt Date: 20130326
  Transmission Date: 20140127
  Serious: Yes (Hospitalization, Other)
  Sender: FDA-Public Use
  Company Number: US-009507513-1211USA001317

PATIENT
  Sex: Female

DRUGS (2)
  1. PEGINTRON [Suspect]
     Indication: HEPATITIS C
     Dosage: UNK
     Dates: start: 20121011
  2. REBETOL [Suspect]
     Indication: HEPATITIS C
     Dosage: UNK
     Dates: start: 20121011

REACTIONS (12)
  - Abscess [Unknown]
  - Dry mouth [Unknown]
  - Dyspepsia [Unknown]
  - Thirst [Unknown]
  - Polydipsia [Unknown]
  - Dizziness [Unknown]
  - Chills [Unknown]
  - Tooth loss [Unknown]
  - Dyspnoea [Unknown]
  - Ear pain [Unknown]
  - Anaemia [Unknown]
  - Haemoglobin decreased [Unknown]
